FAERS Safety Report 6088488-4 (Version None)
Quarter: 2009Q1

REPORT INFORMATION
  Report Type: 
  Country: None (occurrence: None)
  Receive Date: 20090220
  Receipt Date: 20090220
  Transmission Date: 20090719
  Serious: Yes (Life-Threatening, Hospitalization, Other)
  Sender: FDA-Public Use
  Company Number: None

PATIENT
  Age: 74 Year
  Sex: Male
  Weight: 68.9467 kg

DRUGS (3)
  1. CELEBREX [Suspect]
     Indication: NEOPLASM MALIGNANT
     Dosage: 200 MG 2/DAY PO
     Route: 048
     Dates: start: 20030101, end: 20080801
  2. FLOMAX [Concomitant]
  3. ASPIRIN [Concomitant]

REACTIONS (3)
  - ATRIAL FIBRILLATION [None]
  - CORONARY ARTERY DISEASE [None]
  - CORONARY ARTERY OCCLUSION [None]
